FAERS Safety Report 12940076 (Version 4)
Quarter: 2017Q1

REPORT INFORMATION
  Report Type: Report from Study
  Country: US (occurrence: US)
  Receive Date: 20161115
  Receipt Date: 20170329
  Transmission Date: 20170428
  Serious: No
  Sender: FDA-Public Use
  Company Number: PHEH2016US029796

PATIENT
  Age: 62 Year
  Sex: Female

DRUGS (4)
  1. COSENTYX [Suspect]
     Active Substance: SECUKINUMAB
     Dosage: 300 MG (2 PENS), QW
     Route: 058
     Dates: start: 20161107
  2. HUMIRA [Concomitant]
     Active Substance: ADALIMUMAB
     Indication: PSORIASIS
     Dosage: (2 PENS) UNK
     Route: 058
     Dates: start: 201306, end: 201701
  3. COSENTYX [Suspect]
     Active Substance: SECUKINUMAB
     Indication: PSORIASIS
     Dosage: 300 MG (2 PENS), UNK
     Route: 058
     Dates: start: 201609
  4. CALCITRENE [Concomitant]
     Active Substance: CALCIPOTRIENE
     Indication: PSORIASIS
     Dosage: 120 G, (EXTERNALLY) UNK
     Route: 065
     Dates: start: 201305

REACTIONS (7)
  - Chills [Recovering/Resolving]
  - Migraine [Recovered/Resolved]
  - Eye pain [Unknown]
  - Pyrexia [Recovering/Resolving]
  - Influenza [Unknown]
  - Headache [Unknown]
  - Eye swelling [Unknown]

NARRATIVE: CASE EVENT DATE: 20161107
